FAERS Safety Report 4320953-X (Version None)
Quarter: 2004Q1

REPORT INFORMATION
  Report Type: 
  Country: None (occurrence: None)
  Receive Date: 20040318
  Receipt Date: 20030411
  Transmission Date: 20041129
  Serious: Yes (Hospitalization)
  Sender: FDA-Public Use
  Company Number: A03200300768

PATIENT
  Age: 79 Year
  Sex: Male
  Weight: 95.2554 kg

DRUGS (6)
  1. PLAVIX [Suspect]
     Indication: HEART RATE DECREASED
     Dosage: 75 MG QD- ORAL
     Route: 048
     Dates: start: 20030101
  2. PLAVIX [Suspect]
     Indication: STENT PLACEMENT
     Dosage: 75 MG QD- ORAL
     Route: 048
     Dates: start: 20030101
  3. LOSARTAN + HYDROCHLORTHIAZIDE [Concomitant]
  4. LEVOTHYROXINE SODIUM [Concomitant]
  5. ASPIRIN [Concomitant]
  6. ISOSORBIDE DINITRATE [Concomitant]

REACTIONS (7)
  - ERYTHEMA [None]
  - HEART RATE DECREASED [None]
  - HERPES ZOSTER [None]
  - MUSCLE CRAMP [None]
  - RASH [None]
  - SKIN DISCOLOURATION [None]
  - SKIN LESION [None]
